FAERS Safety Report 18920280 (Version 4)
Quarter: 2021Q2

REPORT INFORMATION
  Report Type: Report from Study
  Country: None (occurrence: US)
  Receive Date: 20210222
  Receipt Date: 20210623
  Transmission Date: 20210717
  Serious: Yes (Other)
  Sender: FDA-Public Use
  Company Number: US-ABBVIE-21K-163-3780260-00

PATIENT
  Age: 80 Year
  Sex: Male
  Weight: 65.83 kg

DRUGS (3)
  1. LIPITOR [Concomitant]
     Active Substance: ATORVASTATIN CALCIUM
     Indication: BLOOD CHOLESTEROL ABNORMAL
  2. COVID?19 VACCINE NOS. [Suspect]
     Active Substance: COVID-19 VACCINE NOS
     Indication: COVID-19 IMMUNISATION
     Route: 030
     Dates: start: 20210325, end: 20210325
  3. HUMIRA [Suspect]
     Active Substance: ADALIMUMAB
     Indication: RHEUMATOID ARTHRITIS
     Dosage: CITRATE FREE
     Route: 058
     Dates: start: 200306

REACTIONS (8)
  - Mass [Not Recovered/Not Resolved]
  - Pain in extremity [Unknown]
  - Suture related complication [Not Recovered/Not Resolved]
  - Prostatitis [Unknown]
  - Nausea [Unknown]
  - Benign neoplasm [Recovered/Resolved]
  - Vertigo [Recovered/Resolved]
  - Infection [Unknown]

NARRATIVE: CASE EVENT DATE: 2020
